FAERS Safety Report 9089816 (Version 1)
Quarter: 2013Q1

REPORT INFORMATION
  Report Type: Report from Study
  Country: US (occurrence: US)
  Receive Date: 20130131
  Receipt Date: 20130131
  Transmission Date: 20140127
  Serious: No
  Sender: FDA-Public Use
  Company Number: US-ABBOTT-12P-163-0996941-00

PATIENT
  Age: 48 Year
  Sex: Female

DRUGS (14)
  1. HUMIRA [Suspect]
     Indication: CROHN^S DISEASE
     Dates: start: 20120925, end: 20120925
  2. HUMIRA [Suspect]
     Dates: start: 20121010, end: 20121010
  3. HUMIRA [Suspect]
     Dates: start: 201210
  4. AZATHIOPRINE [Concomitant]
     Indication: CROHN^S DISEASE
     Route: 048
  5. LIDOCAINE [Concomitant]
     Indication: CROHN^S DISEASE
     Route: 061
  6. HYDROCODONE W/ACETAMINOPHEN [Concomitant]
     Indication: PAIN
     Dosage: 5MG/500MG 2 TABS DAILY AS NEEDED
     Route: 048
  7. REMERON [Concomitant]
     Indication: INSOMNIA
     Route: 048
  8. POTASSIUM CHLORIDE [Concomitant]
     Indication: PRODUCT USED FOR UNKNOWN INDICATION
  9. TRAMADOL [Concomitant]
     Indication: PAIN
  10. PANTOPRAZOLE [Concomitant]
     Indication: GASTRIC DISORDER
     Dosage: 40MG DAILY 30 MINUTES BEFORE A MEAL
     Route: 048
  11. PANTOPRAZOLE [Concomitant]
     Indication: PROPHYLAXIS
  12. XANAX [Concomitant]
     Indication: ANXIETY
     Route: 048
  13. ASACOL [Concomitant]
     Indication: CROHN^S DISEASE
     Dosage: 400MG 3 TABS TWICE DAILY
     Route: 048
  14. UNKNOWN VITAMIN SUPPLEMENTS [Concomitant]
     Indication: VITAMIN SUPPLEMENTATION

REACTIONS (8)
  - Malaise [Not Recovered/Not Resolved]
  - Injection site pain [Not Recovered/Not Resolved]
  - Frustration [Not Recovered/Not Resolved]
  - Tearfulness [Not Recovered/Not Resolved]
  - Speech disorder [Not Recovered/Not Resolved]
  - Depression [Not Recovered/Not Resolved]
  - Menopause [Not Recovered/Not Resolved]
  - Pain [Unknown]
